FAERS Safety Report 14897670 (Version 1)
Quarter: 2018Q2

REPORT INFORMATION
  Report Type: Spontaneous
  Country: US (occurrence: US)
  Receive Date: 20180515
  Receipt Date: 20180515
  Transmission Date: 20180711
  Serious: Yes (Hospitalization)
  Sender: FDA-Public Use
  Company Number: US-PERRIGO-18US004803

PATIENT
  Age: 9 Year
  Sex: Female
  Weight: 56.69 kg

DRUGS (6)
  1. BISMUTH SUBSALICYLATE 262 MG 469 [Suspect]
     Active Substance: BISMUTH SUBSALICYLATE
     Indication: ABDOMINAL DISCOMFORT
     Dosage: 524 MG, UNKNOWN
     Route: 048
     Dates: start: 20180419, end: 20180419
  2. TRAZODONE [Concomitant]
     Active Substance: TRAZODONE HYDROCHLORIDE
     Indication: ANXIETY
     Dosage: 50 MG, UNK
     Dates: start: 201712
  3. BISMUTH SUBSALICYLATE 262 MG 469 [Suspect]
     Active Substance: BISMUTH SUBSALICYLATE
     Indication: GASTROENTERITIS VIRAL
     Dosage: 786 MG, UNKNOWN
     Route: 048
     Dates: start: 20180418, end: 20180418
  4. TENEX [Concomitant]
     Active Substance: GUANFACINE HYDROCHLORIDE
     Indication: ATTENTION DEFICIT/HYPERACTIVITY DISORDER
     Dosage: 2 MG, UNK
     Route: 065
     Dates: start: 2017
  5. BISMUTH SUBSALICYLATE 262 MG 469 [Suspect]
     Active Substance: BISMUTH SUBSALICYLATE
     Indication: NAUSEA
  6. TRAZODONE [Concomitant]
     Active Substance: TRAZODONE HYDROCHLORIDE
     Indication: INSOMNIA

REACTIONS (6)
  - Pancreatitis [Not Recovered/Not Resolved]
  - Dehydration [None]
  - Product taste abnormal [None]
  - Abdominal pain [Recovered/Resolved]
  - Wrong technique in product usage process [Recovered/Resolved]
  - Drug administered to patient of inappropriate age [Recovered/Resolved]

NARRATIVE: CASE EVENT DATE: 20180418
